FAERS Safety Report 23765897 (Version 1)
Quarter: 2024Q2

REPORT INFORMATION
  Report Type: Report from Study
  Country: US (occurrence: US)
  Receive Date: 20240421
  Receipt Date: 20240421
  Transmission Date: 20240715
  Serious: Yes (Other)
  Sender: FDA-Public Use
  Company Number: US-002147023-NVSC2024US053352

PATIENT
  Age: 80 Year
  Sex: Female

DRUGS (1)
  1. LEQVIO [Suspect]
     Active Substance: INCLISIRAN SODIUM
     Indication: Product used for unknown indication
     Dosage: FIRST INJECTION ON 2/20
     Route: 058
     Dates: start: 20240220

REACTIONS (4)
  - Pneumonia [Not Recovered/Not Resolved]
  - Illness [Unknown]
  - Traumatic lung injury [Unknown]
  - Injection site pain [Unknown]

NARRATIVE: CASE EVENT DATE: 20240315
